FAERS Safety Report 10249384 (Version 1)
Quarter: 2014Q2

REPORT INFORMATION
  Report Type: Spontaneous
  Country: US (occurrence: US)
  Receive Date: 20140620
  Receipt Date: 20140620
  Transmission Date: 20141212
  Serious: Yes (Hospitalization)
  Sender: FDA-Public Use
  Company Number: 2014SP001871

PATIENT
  Age: 87 Year
  Sex: Female
  Weight: 52 kg

DRUGS (19)
  1. LEVALBUTEROL INHALATION SOLUTION [Suspect]
     Indication: CHRONIC OBSTRUCTIVE PULMONARY DISEASE
     Route: 055
     Dates: start: 20140608
  2. LEVALBUTEROL INHALATION SOLUTION [Suspect]
     Indication: PNEUMONIA
     Route: 055
     Dates: start: 20140608
  3. LEVALBUTEROL INHALATION SOLUTION [Suspect]
     Indication: CHRONIC OBSTRUCTIVE PULMONARY DISEASE
     Route: 055
     Dates: start: 20140607, end: 20140607
  4. LEVALBUTEROL INHALATION SOLUTION [Suspect]
     Indication: PNEUMONIA
     Route: 055
     Dates: start: 20140607, end: 20140607
  5. LEVALBUTEROL INHALATION SOLUTION [Suspect]
     Indication: CHRONIC OBSTRUCTIVE PULMONARY DISEASE
     Route: 055
     Dates: start: 20140521, end: 20140529
  6. LEVALBUTEROL INHALATION SOLUTION [Suspect]
     Indication: PNEUMONIA
     Route: 055
     Dates: start: 20140521, end: 20140529
  7. XOPENEX INHALATION SOLUTION [Concomitant]
     Route: 055
  8. NIFEDIPINE [Concomitant]
     Indication: HYPERTENSION
  9. METOPROLOL TARTRATE [Concomitant]
     Indication: HYPERTENSION
     Route: 048
  10. DIGOXIN [Concomitant]
     Indication: HYPERTENSION
  11. COUMADIN                           /00014802/ [Concomitant]
     Indication: HYPERTENSION
     Route: 048
  12. LORAZEPAM [Concomitant]
     Indication: ANXIETY
     Route: 048
  13. POTASSIUM [Concomitant]
     Route: 048
  14. MIRALAX                            /00754501/ [Concomitant]
     Route: 048
  15. PULMICORT [Concomitant]
  16. FUROSEMIDE [Concomitant]
     Route: 048
  17. CILAZAPRIL [Concomitant]
     Route: 048
  18. VITAMIN D                          /00107901/ [Concomitant]
     Route: 030
  19. CLARITIN                           /00413701/ [Concomitant]
     Route: 048

REACTIONS (4)
  - Convulsion [Recovered/Resolved]
  - Pneumonia [Unknown]
  - Chronic obstructive pulmonary disease [Unknown]
  - Off label use [None]
